FAERS Safety Report 9136100 (Version 1)
Quarter: 2013Q1

REPORT INFORMATION
  Report Type: Spontaneous
  Country: US (occurrence: US)
  Receive Date: 20130304
  Receipt Date: 20130304
  Transmission Date: 20140127
  Serious: Yes (Hospitalization)
  Sender: FDA-Public Use
  Company Number: US-GLAXOSMITHKLINE-A0718167A

PATIENT
  Age: 55 Year
  Sex: Female
  Weight: 90 kg

DRUGS (6)
  1. AVANDIA [Suspect]
     Indication: TYPE 2 DIABETES MELLITUS
     Dosage: 8MG TWICE PER DAY
     Route: 048
     Dates: start: 2003, end: 2006
  2. PREMARIN [Concomitant]
  3. LORAZEPAM [Concomitant]
  4. GLUCOPHAGE [Concomitant]
  5. METFORMIN [Concomitant]
  6. INSULIN [Concomitant]

REACTIONS (2)
  - Heart injury [Not Recovered/Not Resolved]
  - Cardiac failure congestive [Unknown]
